FAERS Safety Report 8378202-1 (Version None)
Quarter: 2012Q2

REPORT INFORMATION
  Report Type: 
  Country: None (occurrence: None)
  Receive Date: 20120522
  Receipt Date: 20120511
  Transmission Date: 20120825
  Serious: Yes (Other)
  Sender: FDA-Public Use
  Company Number: AU-BAXTER-2012BAX005653

PATIENT
  Sex: Male

DRUGS (4)
  1. S-26 [Concomitant]
     Indication: NUTRITIONAL SUPPORT
  2. PENTAVITE [Concomitant]
     Indication: NUTRITIONAL SUPPORT
     Route: 048
  3. PHOSPHATE [Concomitant]
     Indication: NUTRITIONAL SUPPORT
  4. HEPARIN [Suspect]
     Indication: ARTERIAL THROMBOSIS
     Route: 042

REACTIONS (3)
  - FIBULA FRACTURE [None]
  - HUMERUS FRACTURE [None]
  - ULNA FRACTURE [None]
